FAERS Safety Report 7604821-3 (Version None)
Quarter: 2011Q3

REPORT INFORMATION
  Report Type: 
  Country: None (occurrence: None)
  Receive Date: 20110712
  Receipt Date: 20110712
  Transmission Date: 20111222
  Serious: Yes (Life-Threatening, Hospitalization)
  Sender: FDA-Public Use
  Company Number: US-GILEAD-2011-0041458

PATIENT
  Sex: Female
  Weight: 26.5 kg

DRUGS (19)
  1. LASIX [Concomitant]
     Indication: COR PULMONALE CHRONIC
     Dates: start: 20051210
  2. PULMICORT [Concomitant]
     Indication: BRONCHIAL HYPERREACTIVITY
     Dates: start: 20050310
  3. IPRATROPIUM BROMIDE [Concomitant]
     Indication: BRONCHIAL HYPERREACTIVITY
     Dates: start: 20090402
  4. ROBINUL [Concomitant]
     Indication: DYSPHAGIA
     Dates: start: 20081201
  5. TOPAMAX [Concomitant]
     Indication: CONVULSION
  6. PHENOBARBITAL [Concomitant]
     Indication: CONVULSION
  7. BICITRA [Concomitant]
     Indication: VESICOURETERIC REFLUX
  8. DITROPAN [Concomitant]
     Indication: VESICOURETERIC REFLUX
  9. PREVACID [Concomitant]
     Indication: GASTROOESOPHAGEAL REFLUX DISEASE
  10. CAYSTON [Suspect]
     Indication: PSEUDOMONAS INFECTION
  11. PULMOZYME [Concomitant]
     Indication: BRONCHOPNEUMONIA
     Dates: start: 20061120
  12. CALCIUM CITRATE [Concomitant]
  13. NUTROPIN AQ [Concomitant]
     Indication: HYPOPITUITARISM
  14. XOPENEX [Concomitant]
     Indication: BRONCHIAL HYPERREACTIVITY
     Dates: start: 20090430
  15. TRILEPTAL [Concomitant]
     Indication: CONVULSION
  16. PERFOROMIST [Concomitant]
     Indication: BRONCHIAL HYPERREACTIVITY
     Dates: start: 20110225
  17. NORVASC [Concomitant]
     Indication: COR PULMONALE CHRONIC
  18. SYNTHROID [Concomitant]
     Indication: HYPOPITUITARISM
  19. REGLAN [Concomitant]
     Indication: GASTROOESOPHAGEAL REFLUX DISEASE

REACTIONS (2)
  - HYPOXIA [None]
  - BRONCHOSPASM [None]
